FAERS Safety Report 4913371-4 (Version None)
Quarter: 2006Q1

REPORT INFORMATION
  Report Type: 
  Country: None (occurrence: None)
  Receive Date: 20060210
  Receipt Date: 20060203
  Transmission Date: 20060701
  Serious: Yes (Hospitalization)
  Sender: FDA-Public Use
  Company Number: HQWYE645503FEB06

PATIENT
  Age: 73 Year
  Sex: Male

DRUGS (8)
  1. INIPOMP (PANTOPRAZOLE, TABLET) [Suspect]
     Dosage: DF, ORAL
     Route: 048
     Dates: end: 20051216
  2. ALDALIX (FUROSEMIDE/SPIRONOLACTONE, ) [Suspect]
     Dosage: DF, ORAL
     Route: 048
     Dates: end: 20051129
  3. ASPIRIN [Suspect]
     Dosage: DF, ORAL
     Route: 048
  4. LESCOL [Suspect]
     Dosage: DF, ORAL
     Route: 048
     Dates: end: 20051124
  5. NEURONTIN [Suspect]
     Dosage: DF, ORAL
     Route: 048
  6. VERAPAMIL [Suspect]
     Dosage: DF
     Dates: end: 20051129
  7. MIXTARD HUMAN 70/30 [Concomitant]
  8. CALCIPOTRIOL (CALCIPOTRIOL) [Concomitant]

REACTIONS (5)
  - DEHYDRATION [None]
  - DERMATITIS EXFOLIATIVE [None]
  - FACE OEDEMA [None]
  - SKIN FISSURES [None]
  - SKIN ULCER [None]
